FAERS Safety Report 5030161-5 (Version None)
Quarter: 2006Q2

REPORT INFORMATION
  Report Type: 
  Country: None (occurrence: None)
  Receive Date: 20060614
  Receipt Date: 20060530
  Transmission Date: 20061013
  Serious: Yes (Hospitalization)
  Sender: FDA-Public Use
  Company Number: 2006S1003455

PATIENT
  Age: 50 Year
  Sex: Female

DRUGS (8)
  1. FENTANYL TRANSDERMAL SYSTEM [Suspect]
     Indication: BONE PAIN
     Dosage: 25 UG/HR; Q3D; TRANS
     Route: 062
     Dates: start: 20050301
  2. FENTANYL TRANSDERMAL SYSTEM [Suspect]
  3. FENTANYL TRANSDERMAL SYSTEM [Suspect]
     Indication: BONE PAIN
     Dosage: 50 UG/GR; UNKNOWN; TRANS
     Route: 062
     Dates: end: 20060506
  4. ANASTROZOLE [Concomitant]
  5. PARACETAMOL / OXYCODONE HYDROCHLORIDE [Concomitant]
  6. HYDROMORPHONE HCL [Concomitant]
  7. LORAZEPAM [Concomitant]
  8. ONDANSETRON HCL [Concomitant]

REACTIONS (7)
  - ABDOMINAL PAIN [None]
  - BILIARY DILATATION [None]
  - COMPUTERISED TOMOGRAM ABNORMAL [None]
  - MALAISE [None]
  - NAUSEA [None]
  - PANCREATITIS [None]
  - VOMITING [None]
